FAERS Safety Report 5782253-0 (Version None)
Quarter: 2008Q2

REPORT INFORMATION
  Report Type: 
  Country: None (occurrence: None)
  Receive Date: 20080618
  Receipt Date: 20080609
  Transmission Date: 20081010
  Serious: Yes (Disabling)
  Sender: FDA-Public Use
  Company Number: GXKR2008NL05279

PATIENT
  Age: 9 Year
  Sex: Male
  Weight: 36 kg

DRUGS (9)
  1. FENTANYL [Suspect]
     Indication: ANAESTHESIA
     Dosage: 2.5 UG/ML, CONT, EPIDURAL
     Route: 008
  2. CLONIDINE [Suspect]
     Dosage: INTRAVENOUS
     Route: 042
  3. BUPIVACAINE (BUPIVACAINE) 0.25% [Suspect]
     Indication: ANAESTHESIA
     Dosage: 3 ML, ONCE/SINGLE, TESTDOSE, EPIDURAL; 12 ML,BOLUS, EPIDURAL
     Route: 008
  4. BUPIVACAINE (BUPIVACAINE) 0.125% [Suspect]
     Indication: ANAESTHESIA
     Dosage: EPIDURAL
     Route: 008
  5. EPINEPHRINE [Suspect]
     Indication: ANAESTHESIA
     Dosage: 1:200,000, TESTDOSE+SECOND DOSE;EPIDURAL
     Route: 008
  6. VINCRISTINE [Concomitant]
  7. IFOSFAMIDE [Concomitant]
  8. DOXORUBICIN HCL [Concomitant]
  9. ETOPOSIDE [Concomitant]

REACTIONS (4)
  - IATROGENIC INJURY [None]
  - PARAPLEGIA [None]
  - SPINAL CORD INJURY THORACIC [None]
  - SPINAL CORD OEDEMA [None]
